FAERS Safety Report 23167889 (Version 1)
Quarter: 2023Q4

REPORT INFORMATION
  Report Type: Spontaneous
  Country: PL (occurrence: PL)
  Receive Date: 20231109
  Receipt Date: 20231109
  Transmission Date: 20240110
  Serious: Yes (Hospitalization, Other)
  Sender: FDA-Public Use
  Company Number: PL-ABBVIE-5486136

PATIENT
  Age: 78 Year
  Sex: Male

DRUGS (12)
  1. VENETOCLAX [Suspect]
     Active Substance: VENETOCLAX
     Indication: Acute myeloid leukaemia
     Dosage: DURATION TEXT: 2 CYCLE
     Route: 048
     Dates: start: 20230915
  2. VENETOCLAX [Suspect]
     Active Substance: VENETOCLAX
     Indication: Acute myeloid leukaemia
     Dosage: 200 MILLIGRAM
     Route: 048
     Dates: start: 2023, end: 2023
  3. VENETOCLAX [Suspect]
     Active Substance: VENETOCLAX
     Indication: Acute myeloid leukaemia
     Dosage: DURATION TEXT: 1 CYCLE, LAST ADMIN DATE: AUG 2023
     Route: 048
     Dates: start: 20230802
  4. AZACITIDINE [Concomitant]
     Active Substance: AZACITIDINE
     Indication: Acute myeloid leukaemia
     Dosage: LAST ADMIN DATE: 2023
     Dates: start: 20230802
  5. AZACITIDINE [Concomitant]
     Active Substance: AZACITIDINE
     Indication: Acute myeloid leukaemia
     Dates: start: 20230915
  6. HUMAN RED BLOOD CELL [Concomitant]
     Active Substance: HUMAN RED BLOOD CELL
     Indication: Product used for unknown indication
     Dosage: IRRADIATED HYPOLEUKOCYTIC
     Dates: start: 2023
  7. HASCOVIR [Concomitant]
     Indication: Infection prophylaxis
     Dates: start: 2023
  8. PLATELETS [Concomitant]
     Active Substance: HUMAN PLATELET, ALLOGENIC
     Indication: Product used for unknown indication
     Dosage: 5 UNIT,?POOR IRRADIATED LEUKOCYTE
     Dates: start: 2023
  9. PLATELETS [Concomitant]
     Active Substance: HUMAN PLATELET, ALLOGENIC
     Indication: Product used for unknown indication
     Dates: start: 2023
  10. PRONTORAL [Concomitant]
     Indication: Infection prophylaxis
     Dates: start: 2023
  11. NYSTATIN [Concomitant]
     Active Substance: NYSTATIN
     Indication: Infection prophylaxis
     Dates: start: 2023
  12. LEVOFLOXACIN [Concomitant]
     Active Substance: LEVOFLOXACIN
     Indication: Infection prophylaxis
     Dates: start: 2023

REACTIONS (12)
  - Neutropenia [Unknown]
  - Skin ulcer [Unknown]
  - Mouth ulceration [Unknown]
  - White blood cell count decreased [Unknown]
  - Haemoglobin decreased [Unknown]
  - Oedema peripheral [Not Recovered/Not Resolved]
  - Blood test abnormal [Unknown]
  - Bone marrow disorder [Unknown]
  - Generalised oedema [Unknown]
  - Asthenia [Unknown]
  - Exercise tolerance decreased [Unknown]
  - Endovenous ablation [Unknown]

NARRATIVE: CASE EVENT DATE: 20230101
